FAERS Safety Report 10155796 (Version 5)
Quarter: 2014Q3

REPORT INFORMATION
  Report Type: Report from Study
  Country: US (occurrence: US)
  Receive Date: 20140506
  Receipt Date: 20140909
  Transmission Date: 20150326
  Serious: Yes (Hospitalization)
  Sender: FDA-Public Use
  Company Number: US-BRISTOL-MYERS SQUIBB COMPANY-20689725

PATIENT
  Age: 53 Year
  Sex: Male
  Weight: 161.45 kg

DRUGS (27)
  1. VITAMIN C [Concomitant]
     Active Substance: ASCORBIC ACID
     Dates: start: 201312
  2. COLACE [Concomitant]
     Active Substance: DOCUSATE SODIUM
     Dates: start: 20140330
  3. BISACODYL. [Concomitant]
     Active Substance: BISACODYL
  4. ASPIRIN. [Concomitant]
     Active Substance: ASPIRIN
     Dates: start: 20140224
  5. DILAUDID [Concomitant]
     Active Substance: HYDROMORPHONE HYDROCHLORIDE
  6. IPILIMUMAB [Suspect]
     Active Substance: IPILIMUMAB
     Indication: METASTATIC RENAL CELL CARCINOMA
     Dosage: LAST DOSE ON 22APR14 (3RD DOSE OF STUDY)
     Route: 042
     Dates: start: 20140210, end: 20140422
  7. OXYCODONE HCL + ACETAMINOPHEN [Concomitant]
     Active Substance: ACETAMINOPHEN\OXYCODONE HYDROCHLORIDE
     Dates: start: 20140330
  8. ADVIL [Concomitant]
     Active Substance: IBUPROFEN
     Dates: start: 20140413
  9. MIRALAX [Concomitant]
     Active Substance: POLYETHYLENE GLYCOL 3350
  10. PREDNISONE. [Concomitant]
     Active Substance: PREDNISONE
  11. HCTZ [Concomitant]
     Active Substance: HYDROCHLOROTHIAZIDE
  12. NIVOLUMAB [Suspect]
     Active Substance: NIVOLUMAB
     Indication: METASTATIC RENAL CELL CARCINOMA
     Dosage: LAST DOSE ON 22APR14 (3RD DOSE OF STUDY).
     Route: 042
     Dates: start: 20140210
  13. XANAX [Concomitant]
     Active Substance: ALPRAZOLAM
     Dates: start: 200801
  14. BENAZEPRIL HCL + HCTZ [Concomitant]
     Dates: start: 20131113
  15. OXYCONTIN [Concomitant]
     Active Substance: OXYCODONE HYDROCHLORIDE
     Dates: start: 20140413, end: 20140418
  16. STEROIDS [Concomitant]
     Active Substance: UNSPECIFIED INGREDIENT
  17. HEPARIN [Concomitant]
     Active Substance: HEPARIN SODIUM
  18. SOLU-MEDROL [Concomitant]
     Active Substance: METHYLPREDNISOLONE SODIUM SUCCINATE
  19. PERCOCET [Concomitant]
     Active Substance: ACETAMINOPHEN\OXYCODONE HYDROCHLORIDE
  20. ATENOLOL. [Concomitant]
     Active Substance: ATENOLOL
     Dates: start: 20140304, end: 20140422
  21. LEVOTHYROXINE [Concomitant]
     Active Substance: LEVOTHYROXINE
     Dates: start: 20140422
  22. IBUPROFEN. [Concomitant]
     Active Substance: IBUPROFEN
     Dates: start: 20140304
  23. AMBIEN [Concomitant]
     Active Substance: ZOLPIDEM TARTRATE
  24. DAPSONE. [Concomitant]
     Active Substance: DAPSONE
  25. ATIVAN [Concomitant]
     Active Substance: LORAZEPAM
  26. SENOKOT-S [Concomitant]
     Active Substance: DOCUSATE SODIUM\SENNOSIDES
  27. REGLAN [Concomitant]
     Active Substance: METOCLOPRAMIDE HYDROCHLORIDE

REACTIONS (1)
  - Diplopia [Recovered/Resolved]

NARRATIVE: CASE EVENT DATE: 20140427
